FAERS Safety Report 8789048 (Version 1)
Quarter: 2012Q4

REPORT INFORMATION
  Report Type: 
  Country: US (occurrence: US)
  Receive Date: 20120917
  Receipt Date: 20120917
  Transmission Date: 20130627
  Serious: Yes (Life-Threatening, Hospitalization, Disabling)
  Sender: FDA-Public Use
  Company Number: US-009507513-1209USA006251

PATIENT

DRUGS (6)
  1. JANUMET [Suspect]
     Indication: TYPE 2 DIABETES MELLITUS
     Dosage: 50/500, bid
     Route: 048
     Dates: start: 201109
  2. GLUCOSAMINE [Concomitant]
  3. DICLOFENAC [Concomitant]
  4. VENASTAT [Concomitant]
  5. FERRO (FERROUS SULFATE) [Concomitant]
  6. ZETIA [Concomitant]

REACTIONS (1)
  - Pancreatitis [Not Recovered/Not Resolved]
